FAERS Safety Report 6604421-8 (Version None)
Quarter: 2010Q1

REPORT INFORMATION
  Report Type: 
  Country: None (occurrence: None)
  Receive Date: 20100226
  Receipt Date: 20090929
  Transmission Date: 20100710
  Serious: No
  Sender: FDA-Public Use
  Company Number: A0809547A

PATIENT
  Age: 27 Year
  Sex: Female

DRUGS (4)
  1. LAMICTAL CD [Suspect]
     Dosage: 500MG PER DAY
     Route: 048
     Dates: start: 20090601
  2. LAMICTAL CD [Suspect]
     Dosage: 500MG PER DAY
     Route: 048
     Dates: start: 19950101
  3. TOPAMAX [Concomitant]
  4. FOLGARD [Concomitant]

REACTIONS (2)
  - FALL [None]
  - SENSORY DISTURBANCE [None]
